FAERS Safety Report 10830737 (Version 1)
Quarter: 2015Q1

REPORT INFORMATION
  Report Type: Report from Study
  Country: US (occurrence: US)
  Receive Date: 20150219
  Receipt Date: 20150219
  Transmission Date: 20150721
  Serious: No
  Sender: FDA-Public Use
  Company Number: US-ABBVIE-14P-163-1192731-00

PATIENT
  Sex: Female

DRUGS (3)
  1. HUMIRA [Suspect]
     Active Substance: ADALIMUMAB
     Dates: start: 20140108
  2. HUMIRA [Suspect]
     Active Substance: ADALIMUMAB
     Indication: PSORIASIS
     Dates: start: 20131217
  3. HUMIRA [Suspect]
     Active Substance: ADALIMUMAB
     Dates: start: 20131225

REACTIONS (2)
  - Bone pain [Not Recovered/Not Resolved]
  - Wrong technique in drug usage process [Recovered/Resolved]
